FAERS Safety Report 16437074 (Version 4)
Quarter: 2020Q4

REPORT INFORMATION
  Report Type: Report from Study
  Country: US (occurrence: US)
  Receive Date: 20190615
  Receipt Date: 20201027
  Transmission Date: 20210113
  Serious: Yes (Hospitalization)
  Sender: FDA-Public Use
  Company Number: PHHO2019US004985

PATIENT
  Age: 12 Year
  Sex: Male

DRUGS (15)
  1. MERCAPTOPURINE. [Suspect]
     Active Substance: MERCAPTOPURINE
     Dosage: 100 MG X  6 DAYS;  75 MG 1 DAY PER WEEK
     Route: 048
     Dates: start: 20190521
  2. INC424A [Suspect]
     Active Substance: RUXOLITINIB
     Dosage: 50 MG, BID
     Route: 048
     Dates: start: 20190521
  3. MERCAPTOPURINE. [Suspect]
     Active Substance: MERCAPTOPURINE
     Indication: ACUTE LYMPHOCYTIC LEUKAEMIA
     Dosage: 100 MG X 6 DAYS;  75 MG 1 DAY PER WEEK
     Route: 048
     Dates: start: 20190318, end: 20190502
  4. METHOTREXATE. [Suspect]
     Active Substance: METHOTREXATE
     Dosage: 25 MG, QW
     Route: 048
     Dates: start: 20190521
  5. POLYETHYLENE GLYCOL [Concomitant]
     Active Substance: POLYETHYLENE GLYCOLS
     Indication: ABDOMINAL DISCOMFORT
     Dosage: 17 GRAM, PRN
     Route: 048
     Dates: start: 20170407
  6. INC424A [Suspect]
     Active Substance: RUXOLITINIB
     Indication: ACUTE LYMPHOCYTIC LEUKAEMIA
     Dosage: 50 MG, BID
     Route: 048
     Dates: start: 20181029
  7. METHOTREXATE. [Suspect]
     Active Substance: METHOTREXATE
     Dosage: 25 MG, QW
     Route: 048
     Dates: start: 20181009, end: 20190502
  8. DIPHENHYDRAMINE. [Concomitant]
     Active Substance: DIPHENHYDRAMINE
     Indication: HYPERSENSITIVITY
     Dosage: 30 MG, PRN
     Route: 042
     Dates: start: 20170408
  9. ONDANSETRON [Concomitant]
     Active Substance: ONDANSETRON
     Indication: NAUSEA
     Dosage: 4 MG, TID
     Route: 048
     Dates: start: 20190705
  10. AMLODIPINE [Concomitant]
     Active Substance: AMLODIPINE BESYLATE
     Indication: HYPERTENSION
     Dosage: 25 MG, QD
     Route: 048
     Dates: start: 20170423
  11. VITAMIN D3 [Concomitant]
     Active Substance: CHOLECALCIFEROL
     Indication: OSTEONECROSIS
     Dosage: 50000 IU, WEEKLY
     Route: 048
     Dates: start: 20171020
  12. METHOTREXATE. [Suspect]
     Active Substance: METHOTREXATE
     Indication: ACUTE LYMPHOCYTIC LEUKAEMIA
     Dosage: 15 MG, EVERY 85 DAYS
     Route: 037
     Dates: start: 20170125
  13. SULFAMETHOXAZOLE AND TRIMETHOPRIM [Concomitant]
     Active Substance: SULFAMETHOXAZOLE\TRIMETHOPRIM
     Indication: ANTIFUNGAL PROPHYLAXIS
     Dosage: 200 MG, BID
     Route: 048
     Dates: start: 20170128
  14. ONDANSETRON [Concomitant]
     Active Substance: ONDANSETRON
     Dosage: 4 MG, TID
     Route: 048
     Dates: start: 20181029
  15. VINCRISTINE [Suspect]
     Active Substance: VINCRISTINE
     Indication: ACUTE LYMPHOCYTIC LEUKAEMIA
     Dosage: 1.9 MILLIGRAM, Q 28 DAYS
     Route: 042
     Dates: start: 20181126

REACTIONS (3)
  - Upper respiratory tract infection [Recovered/Resolved]
  - Leukopenia [Recovered/Resolved]
  - Herpes zoster [Recovered/Resolved]

NARRATIVE: CASE EVENT DATE: 20190502
